FAERS Safety Report 23979753 (Version 1)
Quarter: 2024Q2

REPORT INFORMATION
  Report Type: Spontaneous
  Country: US (occurrence: US)
  Receive Date: 20240616
  Receipt Date: 20240616
  Transmission Date: 20240715
  Serious: No
  Sender: FDA-Public Use
  Company Number: US-BRISTOL-MYERS SQUIBB COMPANY-2024-095990

PATIENT
  Age: 76 Year
  Sex: Female

DRUGS (16)
  1. REVLIMID [Suspect]
     Active Substance: LENALIDOMIDE
     Indication: Plasma cell myeloma
     Dosage: FREQUENCY:  1 C PO QD (ONCE DAILY) X 14 DAYS THEN 7 DAYS OFF.
     Route: 048
     Dates: start: 20240409, end: 20240613
  2. VITAMIN C [Concomitant]
     Active Substance: ASCORBIC ACID
  3. ACYCLOVIR [Concomitant]
     Active Substance: ACYCLOVIR
  4. ALBUTEROL [Concomitant]
     Active Substance: ALBUTEROL
     Dosage: INH
  5. CINACALCET [Concomitant]
     Active Substance: CINACALCET
  6. DEXAMETHASONE [Concomitant]
     Active Substance: DEXAMETHASONE
  7. DIGOXIN [Concomitant]
     Active Substance: DIGOXIN
  8. ELIQUIS [Concomitant]
     Active Substance: APIXABAN
  9. VENLAFAXINE [Concomitant]
     Active Substance: VENLAFAXINE HYDROCHLORIDE
  10. BACTRIM DS [Concomitant]
     Active Substance: SULFAMETHOXAZOLE\TRIMETHOPRIM
  11. QUETIAPINE [Concomitant]
     Active Substance: QUETIAPINE
  12. DRONABINOL [Concomitant]
     Active Substance: DRONABINOL
  13. PANTOPRAZOLE [Concomitant]
     Active Substance: PANTOPRAZOLE
  14. OLANZAPINE [Concomitant]
     Active Substance: OLANZAPINE
  15. MIRTAZAPINE [Concomitant]
     Active Substance: MIRTAZAPINE
  16. METOPROLOL TARTRATE [Concomitant]
     Active Substance: METOPROLOL TARTRATE

REACTIONS (1)
  - Off label use [Unknown]
